FAERS Safety Report 4297118-3 (Version None)
Quarter: 2004Q1

REPORT INFORMATION
  Report Type: 
  Country: None (occurrence: None)
  Receive Date: 20040213
  Receipt Date: 20040205
  Transmission Date: 20041129
  Serious: Yes (Other)
  Sender: FDA-Public Use
  Company Number: 2004007885

PATIENT
  Age: 49 Year
  Sex: Female
  Weight: 63.05 kg

DRUGS (3)
  1. NEURONTIN [Suspect]
     Indication: PARTIAL SEIZURES
     Dosage: 1200 MG (TID), ORAL
     Route: 048
     Dates: start: 20040101
  2. LEVETIRACETAM (LEVETIRACETAM) [Concomitant]
  3. FLUOXETINE [Concomitant]

REACTIONS (3)
  - CONDITION AGGRAVATED [None]
  - CONVULSION [None]
  - VAGINAL HAEMORRHAGE [None]
